FAERS Safety Report 10361182 (Version 1)
Quarter: 2014Q3

REPORT INFORMATION
  Report Type: Spontaneous
  Country: US (occurrence: PL)
  Receive Date: 20140804
  Receipt Date: 20140804
  Transmission Date: 20150326
  Serious: Yes (Other)
  Sender: FDA-Public Use
  Company Number: PL-FRI-1000069554

PATIENT
  Age: 64 Year
  Sex: Male
  Weight: 97 kg

DRUGS (1)
  1. ROFLUMILAST [Suspect]
     Active Substance: ROFLUMILAST
     Dosage: 500 MCG
     Route: 048
     Dates: start: 20131110

REACTIONS (1)
  - Plasma cell myeloma [Recovering/Resolving]
